FAERS Safety Report 16907950 (Version 1)
Quarter: 2019Q4

REPORT INFORMATION
  Report Type: Spontaneous
  Country: US (occurrence: US)
  Receive Date: 20190820
  Receipt Date: 20190820
  Transmission Date: 20200122
  Serious: Yes (Hospitalization)
  Sender: FDA-Public Use
  Company Number: None

PATIENT
  Age: 15 Year
  Weight: 80.9 kg

DRUGS (19)
  1. MIRALAX [Concomitant]
     Active Substance: POLYETHYLENE GLYCOL 3350
  2. ONDANSETRON [Concomitant]
     Active Substance: ONDANSETRON
  3. RANITIDINE. [Concomitant]
     Active Substance: RANITIDINE
  4. SENNA [Concomitant]
     Active Substance: SENNA LEAF\SENNOSIDES\SENNOSIDES A AND B
  5. LORATIDINE [Concomitant]
     Active Substance: LORATADINE
  6. ZYRTEC [Concomitant]
     Active Substance: CETIRIZINE HYDROCHLORIDE
  7. CYTARABINE. [Suspect]
     Active Substance: CYTARABINE
     Dates: end: 20170723
  8. ONCASPAR [Suspect]
     Active Substance: PEGASPARGASE
     Dates: end: 20170706
  9. BACTRIM [Concomitant]
     Active Substance: SULFAMETHOXAZOLE\TRIMETHOPRIM
  10. METHOTREXATE. [Suspect]
     Active Substance: METHOTREXATE
     Dates: end: 20170720
  11. MARINOL [Concomitant]
     Active Substance: DRONABINOL
  12. PROMETHAZINE [Concomitant]
     Active Substance: PROMETHAZINE HYDROCHLORIDE
  13. CYCLOPHOSPHAMIDE. [Suspect]
     Active Substance: CYCLOPHOSPHAMIDE
     Dates: end: 20170713
  14. DEXAMETHASONE. [Suspect]
     Active Substance: DEXAMETHASONE
     Dates: end: 20170705
  15. LOVENOX [Concomitant]
     Active Substance: ENOXAPARIN SODIUM
  16. DOXORUBICIN HYDROCHLORIDE. [Suspect]
     Active Substance: DOXORUBICIN HYDROCHLORIDE
     Dates: end: 20170629
  17. VITAMIN D [Concomitant]
     Active Substance: VITAMIN D NOS
  18. THIOGUANINE (6-TG) [Suspect]
     Active Substance: THIOGUANINE ANHYDROUS
     Dates: end: 20170723
  19. VINCRISTINE SULFATE. [Suspect]
     Active Substance: VINCRISTINE SULFATE
     Dates: end: 20170629

REACTIONS (9)
  - Confusional state [None]
  - Anxiety [None]
  - Asthenia [None]
  - Hypophagia [None]
  - Dehydration [None]
  - Clostridium test positive [None]
  - Diarrhoea [None]
  - Vomiting [None]
  - Posterior reversible encephalopathy syndrome [None]

NARRATIVE: CASE EVENT DATE: 20170202
